FAERS Safety Report 8610626-7 (Version None)
Quarter: 2012Q3

REPORT INFORMATION
  Report Type: 
  Country: None (occurrence: None)
  Receive Date: 20120423
  Receipt Date: 20100719
  Transmission Date: 20120928
  Serious: Yes (Hospitalization)
  Sender: FDA-Public Use
  Company Number: PHHY2010US45147

PATIENT
  Age: 78 Year
  Sex: Female

DRUGS (1)
  1. FEMARA [Suspect]
     Indication: BREAST CANCER
     Dosage: ORAL ; 2.5 MG, DAILY, ORAL
     Route: 048
     Dates: start: 20100622

REACTIONS (1)
  - CHEST PAIN [None]
